FAERS Safety Report 5464638-5 (Version None)
Quarter: 2007Q3

REPORT INFORMATION
  Report Type: 
  Country: None (occurrence: None)
  Receive Date: 20070921
  Receipt Date: 20070831
  Transmission Date: 20080115
  Serious: Yes (Other)
  Sender: FDA-Public Use
  Company Number: ES-PFIZER INC-2007077979

PATIENT
  Age: 6 Year
  Sex: Male

DRUGS (2)
  1. CETIRIZINE HCL [Suspect]
     Indication: RHINITIS ALLERGIC
     Route: 048
  2. CORTICOSTEROIDS [Concomitant]
     Indication: RHINITIS ALLERGIC
     Route: 061

REACTIONS (5)
  - DRUG HYPERSENSITIVITY [None]
  - FACE OEDEMA [None]
  - PRURITUS GENERALISED [None]
  - RESPIRATORY DISORDER [None]
  - URTICARIA [None]
